FAERS Safety Report 4698041-2 (Version None)
Quarter: 2005Q2

REPORT INFORMATION
  Report Type: 
  Country: None (occurrence: None)
  Receive Date: 20050621
  Receipt Date: 20050610
  Transmission Date: 20051028
  Serious: Yes (Other)
  Sender: FDA-Public Use
  Company Number: 2005087607

PATIENT
  Age: 75 Year
  Sex: Female
  Weight: 74.8435 kg

DRUGS (2)
  1. LIPITOR [Suspect]
     Indication: BLOOD CHOLESTEROL
     Dosage: 10 MG ORAL
     Route: 048
     Dates: end: 20050101
  2. ALL OTHER THERAPEUTIC PRODUCTS [Concomitant]

REACTIONS (2)
  - POOR PERIPHERAL CIRCULATION [None]
  - SKIN DISCOLOURATION [None]
